FAERS Safety Report 7060232-3 (Version None)
Quarter: 2010Q4

REPORT INFORMATION
  Report Type: 
  Country: None (occurrence: None)
  Receive Date: 20101025
  Receipt Date: 20101013
  Transmission Date: 20110411
  Serious: Yes (Other)
  Sender: FDA-Public Use
  Company Number: JP-MERCK-1008USA02644

PATIENT
  Age: 74 Year
  Sex: Male
  Weight: 62 kg

DRUGS (12)
  1. JANUVIA [Suspect]
     Indication: DIABETES MELLITUS
     Route: 048
     Dates: start: 20100625, end: 20100722
  2. AMARYL [Concomitant]
     Indication: DIABETES MELLITUS
     Route: 048
     Dates: start: 20100625
  3. ACTOS [Concomitant]
     Indication: DIABETES MELLITUS
     Route: 048
  4. BASEN [Concomitant]
     Indication: DIABETES MELLITUS
     Route: 048
     Dates: start: 20100121
  5. CRESTOR [Concomitant]
     Indication: DYSLIPIDAEMIA
     Route: 048
     Dates: start: 20090611, end: 20100722
  6. PLAVIX [Concomitant]
     Indication: ANGINA PECTORIS
     Route: 048
     Dates: start: 20090624
  7. BLOPRESS [Concomitant]
     Indication: HYPERTENSION
     Route: 048
  8. AMLODIN OD [Concomitant]
     Indication: HYPERTENSION
     Route: 048
  9. 8-HOUR BAYER [Concomitant]
     Indication: ANGINA PECTORIS
     Route: 048
  10. SIGMART [Concomitant]
     Indication: ANGINA PECTORIS
     Route: 048
     Dates: start: 20090723
  11. ARTIST [Concomitant]
     Indication: ANGINA PECTORIS
     Route: 048
     Dates: start: 20091112
  12. ALOSITOL [Concomitant]
     Route: 048

REACTIONS (1)
  - RHABDOMYOLYSIS [None]
